FAERS Safety Report 6034257-0 (Version None)
Quarter: 2009Q1

REPORT INFORMATION
  Report Type: 
  Country: None (occurrence: None)
  Receive Date: 20090112
  Receipt Date: 20081231
  Transmission Date: 20090719
  Serious: Yes (Other)
  Sender: FDA-Public Use
  Company Number: US-ROCHE-593907

PATIENT
  Sex: Female
  Weight: 56.2 kg

DRUGS (6)
  1. BONIVA [Suspect]
     Indication: OSTEOPOROSIS
     Dosage: STRENGTH: 3MG/3ML
     Route: 042
     Dates: start: 20080124, end: 20081023
  2. AMBIEN [Concomitant]
     Dosage: BEDTIME
     Route: 048
     Dates: start: 20080109
  3. ATIVAN [Concomitant]
     Indication: ANXIETY
     Dosage: BEDTIME
     Route: 048
     Dates: start: 20080109
  4. ZOVIRAX [Concomitant]
     Dosage: OTHER INDICATION: HERPES, ANTI-VIRAL FREQUENCY: DAILY
     Route: 048
  5. GABAPENTIN [Concomitant]
     Indication: PAIN
     Dosage: DAILY
     Route: 048
  6. NAPROSYN [Concomitant]
     Indication: ANTIINFLAMMATORY THERAPY
     Dosage: DAILY
     Route: 048
     Dates: start: 20081029

REACTIONS (2)
  - INJECTION SITE EXTRAVASATION [None]
  - OEDEMA PERIPHERAL [None]
